FAERS Safety Report 24066786 (Version 2)
Quarter: 2025Q2

REPORT INFORMATION
  Report Type: Spontaneous
  Country: CN (occurrence: CN)
  Receive Date: 20240709
  Receipt Date: 20250523
  Transmission Date: 20250716
  Serious: Yes (Death, Life-Threatening, Hospitalization)
  Sender: PFIZER
  Company Number: CN-PFIZER INC-PV202400088345

PATIENT
  Age: 76 Year
  Sex: Female

DRUGS (4)
  1. TIGECYCLINE [Suspect]
     Active Substance: TIGECYCLINE
     Indication: Pneumonia
     Dosage: 100 MG, 2X/DAY
  2. TIGECYCLINE [Suspect]
     Active Substance: TIGECYCLINE
     Dosage: 50 MG, 2X/DAY
  3. CEFOPERAZONE SODIUM\SULBACTAM SODIUM [Concomitant]
     Active Substance: CEFOPERAZONE SODIUM\SULBACTAM SODIUM
     Indication: Pneumonia
     Dosage: 3 G, 3X/DAY (1 : 1)
  4. CLOPIDOGREL BISULFATE [Concomitant]
     Active Substance: CLOPIDOGREL BISULFATE

REACTIONS (3)
  - Off label use [Fatal]
  - Acute hepatic failure [Fatal]
  - Cholestatic liver injury [Fatal]
